FAERS Safety Report 15334339 (Version 1)
Quarter: 2018Q3

REPORT INFORMATION
  Report Type: Spontaneous
  Country: US (occurrence: US)
  Receive Date: 20180830
  Receipt Date: 20180830
  Transmission Date: 20181010
  Serious: No
  Sender: FDA-Public Use
  Company Number: US-PFIZER INC-2018346225

PATIENT
  Sex: Female

DRUGS (6)
  1. DIAZEPAM. [Concomitant]
     Active Substance: DIAZEPAM
     Dosage: 2.5 DF, UNK (2.5 TABLETS IN THE MORNING BY MOUTH)
     Dates: start: 20180827
  2. DIAZEPAM. [Concomitant]
     Active Substance: DIAZEPAM
     Dosage: 2MG TABLET ONCE DAILY AT NIGHT BY MOUTH
     Route: 048
  3. ZOLPIDEM [Concomitant]
     Active Substance: ZOLPIDEM\ZOLPIDEM TARTRATE
     Indication: SLEEP DISORDER
     Dosage: 10MG TABLET. HALF TABLET ONCE DAILY BY MOUTH AT NIGHT AND HALF TABLET IN THE MIDDLE OF THE NIGHT
     Route: 048
  4. ADVIL PM [Suspect]
     Active Substance: DIPHENHYDRAMINE CITRATE\IBUPROFEN
     Dosage: TOOK 1 ADVIL PM LAST NIGHT AT 10PM AND THEN ANOTHER ONE THIS MORNING
  5. PROPANOLOL [PROPRANOLOL] [Concomitant]
     Active Substance: PROPRANOLOL HYDROCHLORIDE
     Indication: ANXIETY
     Dosage: 10 MG, 1X/DAY
     Route: 048
  6. LORAZEPAM. [Concomitant]
     Active Substance: LORAZEPAM
     Indication: ANXIETY
     Dosage: 0.5MG TABLET ONCE DAILY BY MOUTH. SHE CAN TAKE MORE AS NEEDED
     Route: 048

REACTIONS (3)
  - Incorrect dose administered [Unknown]
  - Insomnia [Unknown]
  - Medication error [Unknown]
